FAERS Safety Report 19132254 (Version 1)
Quarter: 2021Q2

REPORT INFORMATION
  Report Type: Spontaneous
  Country: US (occurrence: US)
  Receive Date: 20210413
  Receipt Date: 20210413
  Transmission Date: 20210717
  Serious: No
  Sender: FDA-Public Use
  Company Number: US-TEVA-2021-US-1899017

PATIENT
  Age: 47 Year
  Sex: Male

DRUGS (1)
  1. OXYCODONE HYDROCHLORIDE TEVA [Suspect]
     Active Substance: OXYCODONE HYDROCHLORIDE
     Indication: INSOMNIA
     Route: 065
     Dates: start: 2012, end: 2015

REACTIONS (3)
  - Constipation [Not Recovered/Not Resolved]
  - Off label use [Unknown]
  - Product use in unapproved indication [Unknown]
